FAERS Safety Report 5202195-9 (Version None)
Quarter: 2007Q1

REPORT INFORMATION
  Report Type: 
  Country: None (occurrence: None)
  Receive Date: 20070109
  Receipt Date: 20070103
  Transmission Date: 20070707
  Serious: Yes (Death)
  Sender: FDA-Public Use
  Company Number: US-BRISTOL-MYERS SQUIBB COMPANY-13630629

PATIENT
  Age: 51 Year
  Sex: Female
  Weight: 56 kg

DRUGS (3)
  1. TAXOL [Suspect]
     Indication: COLON CANCER
  2. TAXOL [Suspect]
     Indication: GASTRIC CANCER
  3. PARAPLATIN [Concomitant]

REACTIONS (1)
  - DEATH [None]
